FAERS Safety Report 19005163 (Version 1)
Quarter: 2021Q1

REPORT INFORMATION
  Report Type: Spontaneous
  Country: CN (occurrence: CN)
  Receive Date: 20210313
  Receipt Date: 20210313
  Transmission Date: 20210420
  Serious: Yes (Hospitalization, Other)
  Sender: FDA-Public Use
  Company Number: CN-EPICPHARMA-CN-2021EPCLIT00254

PATIENT
  Age: 81 Year
  Sex: Male

DRUGS (6)
  1. AMLODIPINE [Suspect]
     Active Substance: AMLODIPINE BESYLATE
     Indication: PRODUCT USED FOR UNKNOWN INDICATION
     Route: 065
  2. CLOPIDOGREL [Suspect]
     Active Substance: CLOPIDOGREL BISULFATE
     Indication: PRODUCT USED FOR UNKNOWN INDICATION
     Route: 065
  3. SULBACTAM [Interacting]
     Active Substance: SULBACTAM
     Indication: PNEUMONIA
     Route: 065
  4. METOPROLOL. [Suspect]
     Active Substance: METOPROLOL
     Indication: PRODUCT USED FOR UNKNOWN INDICATION
     Route: 065
  5. ROSUVASTATIN. [Suspect]
     Active Substance: ROSUVASTATIN
     Indication: PRODUCT USED FOR UNKNOWN INDICATION
     Route: 065
  6. PIPERACILLIN. [Interacting]
     Active Substance: PIPERACILLIN SODIUM
     Indication: PNEUMONIA
     Route: 065

REACTIONS (2)
  - Rhabdomyolysis [Unknown]
  - Drug interaction [Unknown]
